FAERS Safety Report 6996514-0 (Version None)
Quarter: 2010Q3

REPORT INFORMATION
  Report Type: 
  Country: None (occurrence: None)
  Receive Date: 20100918
  Receipt Date: 20090330
  Transmission Date: 20110219
  Serious: No
  Sender: FDA-Public Use
  Company Number: US-WYE-H08783309

PATIENT
  Age: 72 Year
  Sex: Female
  Weight: 67.65 kg

DRUGS (3)
  1. ALAVERT [Suspect]
     Indication: HYPERSENSITIVITY
     Route: 048
     Dates: start: 20090324, end: 20090326
  2. SYNTHROID [Concomitant]
  3. NEXIUM [Concomitant]

REACTIONS (2)
  - GLOSSODYNIA [None]
  - THROAT IRRITATION [None]
